FAERS Safety Report 10357001 (Version 5)
Quarter: 2015Q2

REPORT INFORMATION
  Report Type: Spontaneous
  Country: US (occurrence: US)
  Receive Date: 20140801
  Receipt Date: 20150401
  Transmission Date: 20150821
  Serious: Yes (Other)
  Sender: FDA-Public Use
  Company Number: US-JNJFOC-20140714906

PATIENT
  Age: 38 Year
  Sex: Female
  Weight: 111.13 kg

DRUGS (3)
  1. AMOXICILLIN. [Concomitant]
     Active Substance: AMOXICILLIN
     Route: 048
     Dates: end: 20140711
  2. TOPAMAX [Suspect]
     Active Substance: TOPIRAMATE
     Indication: MIGRAINE PROPHYLAXIS
     Route: 048
     Dates: start: 20140707, end: 20140711
  3. LEXAPRO [Concomitant]
     Active Substance: ESCITALOPRAM OXALATE
     Route: 048
     Dates: end: 20140711

REACTIONS (4)
  - Upper respiratory tract infection [Unknown]
  - Visual impairment [Recovered/Resolved]
  - Disorientation [Recovering/Resolving]
  - Myopia [Recovered/Resolved]

NARRATIVE: CASE EVENT DATE: 20140710
